FAERS Safety Report 17779976 (Version 1)
Quarter: 2020Q2

REPORT INFORMATION
  Report Type: Spontaneous
  Country: US (occurrence: US)
  Receive Date: 20200513
  Receipt Date: 20200513
  Transmission Date: 20200714
  Serious: Yes (Life-Threatening, Hospitalization, Other)
  Sender: FDA-Public Use
  Company Number: US-NAPPMUNDI-USA-2020-0152901

PATIENT
  Sex: Male

DRUGS (4)
  1. OXYCONTIN [Suspect]
     Active Substance: OXYCODONE HYDROCHLORIDE
     Dosage: 30 MG, BID
     Route: 048
  2. OXYCODONE HYDROCHLORIDE (SIMILAR TO NDA 22-272) [Suspect]
     Active Substance: OXYCODONE HYDROCHLORIDE
     Indication: PAIN
     Dosage: 15 MG, QID
     Route: 048
     Dates: start: 2010
  3. OXYCONTIN [Suspect]
     Active Substance: OXYCODONE HYDROCHLORIDE
     Indication: PAIN
     Dosage: 40 MG, BID
     Route: 048
  4. OXYCONTIN [Suspect]
     Active Substance: OXYCODONE HYDROCHLORIDE
     Dosage: 20 MG, BID
     Route: 048

REACTIONS (5)
  - Spinal operation [Not Recovered/Not Resolved]
  - Coma [Not Recovered/Not Resolved]
  - Brain injury [Not Recovered/Not Resolved]
  - Ileus paralytic [Not Recovered/Not Resolved]
  - Aspiration [Not Recovered/Not Resolved]

NARRATIVE: CASE EVENT DATE: 20191024
